FAERS Safety Report 5405258-8 (Version None)
Quarter: 2007Q3

REPORT INFORMATION
  Report Type: 
  Country: None (occurrence: None)
  Receive Date: 20070803
  Receipt Date: 20070731
  Transmission Date: 20080115
  Serious: Yes (Other)
  Sender: FDA-Public Use
  Company Number: A0628370A

PATIENT
  Age: 71 Year
  Sex: Female
  Weight: 53.6 kg

DRUGS (7)
  1. ADVAIR DISKUS 100/50 [Suspect]
     Indication: CHRONIC OBSTRUCTIVE PULMONARY DISEASE
     Route: 055
     Dates: start: 20060701, end: 20061001
  2. DUONEB [Concomitant]
     Route: 055
  3. ALBUTEROL [Concomitant]
     Route: 055
  4. LOVASTATIN [Concomitant]
     Route: 048
  5. ESTROGEN [Concomitant]
     Route: 048
  6. CALCIUM CHLORIDE [Concomitant]
     Route: 048
  7. MULTI-VITAMIN [Concomitant]
     Route: 048

REACTIONS (2)
  - CANDIDIASIS [None]
  - THROAT IRRITATION [None]
